FAERS Safety Report 5593604-4 (Version None)
Quarter: 2008Q1

REPORT INFORMATION
  Report Type: 
  Country: None (occurrence: None)
  Receive Date: 20080116
  Receipt Date: 20080106
  Transmission Date: 20080703
  Serious: Yes (Hospitalization)
  Sender: FDA-Public Use
  Company Number: GB-KINGPHARMUSA00001-K200800028

PATIENT

DRUGS (4)
  1. MORPHINE SULFATE [Suspect]
     Indication: LABOUR PAIN
     Dosage: 10 MG, SINGLE
     Route: 030
  2. MAGNESIUM SULFATE [Suspect]
     Indication: PRE-ECLAMPSIA
     Dosage: 5 G, UNK
     Route: 042
  3. MAGNESIUM SULFATE [Suspect]
     Dosage: 1 G/H
     Route: 042
  4. LABETALOL HCL [Concomitant]
     Indication: HYPERTENSION

REACTIONS (12)
  - BLOOD PRESSURE INCREASED [None]
  - DRUG TOXICITY [None]
  - MIOSIS [None]
  - OXYGEN SATURATION DECREASED [None]
  - POTENTIATING DRUG INTERACTION [None]
  - PRE-ECLAMPSIA [None]
  - PROTEINURIA [None]
  - RESPIRATORY ACIDOSIS [None]
  - RESPIRATORY DEPRESSION [None]
  - RESPIRATORY RATE DECREASED [None]
  - SOMNOLENCE [None]
  - UNRESPONSIVE TO STIMULI [None]
